FAERS Safety Report 6799052-3 (Version None)
Quarter: 2010Q2

REPORT INFORMATION
  Report Type: 
  Country: None (occurrence: None)
  Receive Date: 20100623
  Receipt Date: 20100616
  Transmission Date: 20101027
  Serious: Yes (Hospitalization, Other)
  Sender: FDA-Public Use
  Company Number: 2006-144661-NL

PATIENT
  Age: 25 Year
  Sex: Female
  Weight: 83.9154 kg

DRUGS (10)
  1. NUVARING [Suspect]
     Indication: CONTRACEPTION
     Dosage: OM; VAG
     Route: 067
     Dates: start: 20060126, end: 20060525
  2. COUMADIN [Suspect]
     Indication: CEREBROVASCULAR ACCIDENT
     Dates: start: 20060501
  3. NOREL SR [Concomitant]
  4. AMOXICILLIN [Concomitant]
  5. APAP W/ CODEINE [Concomitant]
  6. AZITHROMYCIN [Concomitant]
  7. CIPRODEX [Concomitant]
  8. PROPRANOLOL [Concomitant]
  9. TYLENOL W/ CODEINE NO. 3 [Concomitant]
  10. NEURONTIN [Concomitant]

REACTIONS (24)
  - AMENORRHOEA [None]
  - AMNESIA [None]
  - ANGINA PECTORIS [None]
  - ARRHYTHMIA [None]
  - BLOOD CHOLESTEROL INCREASED [None]
  - CEREBRAL INFARCTION [None]
  - CEREBROVASCULAR ACCIDENT [None]
  - CYSTITIS HAEMORRHAGIC [None]
  - DEEP VEIN THROMBOSIS [None]
  - DEPRESSION [None]
  - DISEASE RECURRENCE [None]
  - EXTERNAL EAR INFLAMMATION [None]
  - GENERAL PHYSICAL CONDITION ABNORMAL [None]
  - HEADACHE [None]
  - HYPERCOAGULATION [None]
  - HYPERSENSITIVITY [None]
  - HYPERTENSION [None]
  - NEPHROLITHIASIS [None]
  - PERIPHERAL VASCULAR DISORDER [None]
  - PHARYNGITIS [None]
  - SCLERAL HAEMORRHAGE [None]
  - SUBARACHNOID HAEMORRHAGE [None]
  - URINARY TRACT INFECTION BACTERIAL [None]
  - VISION BLURRED [None]
